FAERS Safety Report 20328601 (Version 1)
Quarter: 2022Q1

REPORT INFORMATION
  Report Type: Spontaneous
  Country: US (occurrence: None)
  Receive Date: 20220112
  Receipt Date: 20220112
  Transmission Date: 20220423
  Serious: Yes (Death)
  Sender: FDA-Public Use
  Company Number: None

PATIENT
  Sex: Male

DRUGS (11)
  1. INGREZZA [Suspect]
     Active Substance: VALBENAZINE
     Indication: Stereotypy
     Dosage: FREQUENCY : DAILY;?
     Route: 048
     Dates: start: 20211214
  2. BUSPAR TAB [Concomitant]
  3. CLONAZEPAM [Concomitant]
     Active Substance: CLONAZEPAM
  4. COLACE CAP [Concomitant]
  5. FIBERCON TAB [Concomitant]
  6. INGREZZA [Concomitant]
     Active Substance: VALBENAZINE
  7. LAMOTRIGINE [Concomitant]
     Active Substance: LAMOTRIGINE
  8. MIRTAZAPINE TAB [Concomitant]
  9. PROPRANOLOL TAB [Concomitant]
  10. ROSUVASTATIN [Concomitant]
     Active Substance: ROSUVASTATIN
  11. TAMSULOSIN [Concomitant]
     Active Substance: TAMSULOSIN

REACTIONS (1)
  - Death [None]
